FAERS Safety Report 4407560-5 (Version None)
Quarter: 2004Q3

REPORT INFORMATION
  Report Type: 
  Country: None (occurrence: None)
  Receive Date: 20040726
  Receipt Date: 20040220
  Transmission Date: 20050211
  Serious: No
  Sender: FDA-Public Use
  Company Number: US-GLAXOSMITHKLINE-A0499233A

PATIENT
  Age: 82 Year
  Sex: Female

DRUGS (1)
  1. HYCAMTIN [Suspect]
     Route: 042

REACTIONS (2)
  - BLISTER [None]
  - PAIN [None]
